FAERS Safety Report 4410936-3 (Version None)
Quarter: 2004Q3

REPORT INFORMATION
  Report Type: 
  Country: None (occurrence: None)
  Receive Date: 20040729
  Receipt Date: 20040503
  Transmission Date: 20050211
  Serious: Yes (Hospitalization, Disabling)
  Sender: FDA-Public Use
  Company Number: US-ROCHE-366626

PATIENT
  Age: 60 Year
  Sex: Female
  Weight: 75.8 kg

DRUGS (2)
  1. PEGASYS [Suspect]
     Indication: HEPATITIS C
     Dosage: DOSE TAKEN ON A FRIDAY.
     Route: 058
     Dates: start: 20030808, end: 20040227
  2. COPEGUS [Suspect]
     Indication: HEPATITIS C
     Dosage: DOSE REPORTED AS 2 AM AND 3 PM
     Route: 048
     Dates: start: 20030808, end: 20040227

REACTIONS (10)
  - ATHEROSCLEROSIS [None]
  - BLINDNESS [None]
  - BLINDNESS UNILATERAL [None]
  - BLOOD TRIGLYCERIDES ABNORMAL [None]
  - BLOOD TRIGLYCERIDES INCREASED [None]
  - CAROTID ARTERY ATHEROMA [None]
  - CHOLECYSTECTOMY [None]
  - POST PROCEDURAL COMPLICATION [None]
  - RETINAL ARTERY OCCLUSION [None]
  - RETINAL EXUDATES [None]
